FAERS Safety Report 11231085 (Version 1)
Quarter: 2015Q2

REPORT INFORMATION
  Report Type: Spontaneous
  Country: US (occurrence: None)
  Receive Date: 20150629
  Receipt Date: 20150629
  Transmission Date: 20150821
  Serious: Yes (Other)
  Sender: FDA-Public Use
  Company Number: None

PATIENT
  Age: 43 Year
  Sex: Male
  Weight: 68.04 kg

DRUGS (8)
  1. FLEETS ENEMA [Concomitant]
  2. LEVERTIRACETAM 100 MG/ML QUALITEST [Suspect]
     Active Substance: LEVETIRACETAM
     Indication: CEREBRAL PALSY
     Dosage: 8.5M AM / 11.5 ML PM
     Route: 048
     Dates: start: 20150529, end: 20150624
  3. LEVERTIRACETAM 100 MG/ML QUALITEST [Suspect]
     Active Substance: LEVETIRACETAM
     Indication: SEIZURE
     Dosage: 8.5M AM / 11.5 ML PM
     Route: 048
     Dates: start: 20150529, end: 20150624
  4. KEPPRA [Concomitant]
     Active Substance: LEVETIRACETAM
  5. RANITIDINE [Concomitant]
     Active Substance: RANITIDINE\RANITIDINE HYDROCHLORIDE
  6. XARELTO [Concomitant]
     Active Substance: RIVAROXABAN
  7. ROBITUSION COUGH MEDICINE [Concomitant]
  8. MIRALAX [Concomitant]
     Active Substance: POLYETHYLENE GLYCOL 3350

REACTIONS (4)
  - Product substitution issue [None]
  - Somnolence [None]
  - Seizure [None]
  - Product quality issue [None]
